FAERS Safety Report 16728923 (Version 1)
Quarter: 2019Q3

REPORT INFORMATION
  Report Type: Spontaneous
  Country: AU (occurrence: AU)
  Receive Date: 20190822
  Receipt Date: 20190822
  Transmission Date: 20191005
  Serious: Yes (Other)
  Sender: FDA-Public Use
  Company Number: AU-SA-2019SA230317

PATIENT
  Age: 62 Year
  Sex: Male

DRUGS (2)
  1. TAMSULOSIN HYDROCHLORIDE. [Suspect]
     Active Substance: TAMSULOSIN HYDROCHLORIDE
     Indication: PROSTATOMEGALY
  2. TAMSULOSIN HYDROCHLORIDE. [Suspect]
     Active Substance: TAMSULOSIN HYDROCHLORIDE
     Indication: URINE FLOW DECREASED
     Dosage: 1 DF, QD

REACTIONS (7)
  - Headache [Unknown]
  - Insomnia [Unknown]
  - Impaired driving ability [Unknown]
  - Constipation [Recovered/Resolved]
  - Neck pain [Unknown]
  - Nervous system disorder [Unknown]
  - Product dose omission [Unknown]
